FAERS Safety Report 24720655 (Version 1)
Quarter: 2024Q4

REPORT INFORMATION
  Report Type: Spontaneous
  Country: GB (occurrence: GB)
  Receive Date: 20241211
  Receipt Date: 20241211
  Transmission Date: 20250115
  Serious: Yes (Other)
  Sender: DR REDDYS
  Company Number: GB-GERMAN-LIT/GBR/24/0018146

PATIENT
  Age: 20 Year
  Sex: Male

DRUGS (3)
  1. FLUOXETINE [Suspect]
     Active Substance: FLUOXETINE HYDROCHLORIDE
     Indication: Bipolar disorder
  2. LITHIUM [Suspect]
     Active Substance: LITHIUM
     Indication: Bipolar disorder
  3. LYSERGIDE [Concomitant]
     Active Substance: LYSERGIDE
     Indication: Bipolar disorder

REACTIONS (3)
  - Serotonin syndrome [Unknown]
  - Drug interaction [Unknown]
  - Product use in unapproved indication [Unknown]
